FAERS Safety Report 4578021-8 (Version None)
Quarter: 2005Q1

REPORT INFORMATION
  Report Type: 
  Country: None (occurrence: None)
  Receive Date: 20050202
  Receipt Date: 20050202
  Transmission Date: 20050727
  Serious: Yes (Life-Threatening)
  Sender: FDA-Public Use
  Company Number: None

PATIENT
  Age: 64 Year
  Sex: Female

DRUGS (1)
  1. COTRIM [Suspect]
     Indication: URINARY TRACT INFECTION
     Dosage: 1 TAB PO BID
     Route: 048
     Dates: start: 20040728, end: 20040730

REACTIONS (1)
  - DYSPNOEA [None]
